FAERS Safety Report 7936996-0 (Version None)
Quarter: 2011Q4

REPORT INFORMATION
  Report Type: 
  Country: None (occurrence: None)
  Receive Date: 20111123
  Receipt Date: 20111111
  Transmission Date: 20120403
  Serious: Yes (Hospitalization)
  Sender: FDA-Public Use
  Company Number: US-MYLANLABS-2011S1023823

PATIENT
  Age: 15 Month
  Sex: Male

DRUGS (1)
  1. ONDANSETRON [Suspect]
     Indication: ACCIDENTAL OVERDOSE
     Dosage: A MAXIMUM OF 18 TABLETS (4MG AND 8MG)
     Route: 048

REACTIONS (7)
  - FLUSHING [None]
  - IRRITABILITY [None]
  - SINUS TACHYCARDIA [None]
  - ACCIDENTAL DRUG INTAKE BY CHILD [None]
  - ACCIDENTAL OVERDOSE [None]
  - MENTAL STATUS CHANGES [None]
  - ELECTROCARDIOGRAM QT PROLONGED [None]
